FAERS Safety Report 9649095 (Version 2)
Quarter: 2014Q1

REPORT INFORMATION
  Report Type: Spontaneous
  Country: US (occurrence: US)
  Receive Date: 20131028
  Receipt Date: 20140122
  Transmission Date: 20141002
  Serious: Yes (Hospitalization, Disabling)
  Sender: FDA-Public Use
  Company Number: US-009507513-1310USA010654

PATIENT
  Sex: Female
  Weight: 56.69 kg

DRUGS (1)
  1. NUVARING [Suspect]
     Indication: CONTRACEPTION
     Dosage: UNK
     Route: 067
     Dates: start: 20110517, end: 20130606

REACTIONS (9)
  - Leukocytosis [Recovering/Resolving]
  - Thrombophlebitis superficial [Unknown]
  - Hepatic adenoma [Unknown]
  - Liver function test abnormal [Recovering/Resolving]
  - Thrombocytosis [Recovering/Resolving]
  - Hypertension [Unknown]
  - Pyrexia [Unknown]
  - Abscess [Unknown]
  - Abdominal pain upper [Unknown]
